FAERS Safety Report 11585942 (Version 2)
Quarter: 2016Q1

REPORT INFORMATION
  Report Type: Spontaneous
  Country: US (occurrence: US)
  Receive Date: 20151001
  Receipt Date: 20160126
  Transmission Date: 20160525
  Serious: Yes (Other)
  Sender: FDA-Public Use
  Company Number: US-DEP_12748_2015

PATIENT
  Age: 73 Year
  Sex: Female
  Weight: 72 kg

DRUGS (3)
  1. GRALISE [Suspect]
     Active Substance: GABAPENTIN
     Dosage: SAMPLE PACK
     Route: 048
     Dates: start: 20150917, end: 20150917
  2. GRALISE [Suspect]
     Active Substance: GABAPENTIN
     Dosage: SAMPLE PACK, EVENING
     Route: 048
     Dates: start: 20150918, end: 201509
  3. GRALISE [Suspect]
     Active Substance: GABAPENTIN
     Indication: NEURALGIA
     Dosage: SAMPLE PACK
     Route: 048
     Dates: start: 201509

REACTIONS (2)
  - Off label use [Recovered/Resolved]
  - Dizziness [Recovered/Resolved]

NARRATIVE: CASE EVENT DATE: 20150917
